FAERS Safety Report 20163458 (Version 1)
Quarter: 2021Q4

REPORT INFORMATION
  Report Type: Spontaneous
  Country: HR (occurrence: HR)
  Receive Date: 20211209
  Receipt Date: 20211209
  Transmission Date: 20220303
  Serious: Yes (Death)
  Sender: FDA-Public Use
  Company Number: None

PATIENT
  Age: 74 Year
  Sex: Male
  Weight: 70 kg

DRUGS (1)
  1. ROZLYTREK [Suspect]
     Active Substance: ENTRECTINIB
     Indication: Non-small cell lung cancer
     Dosage: JACINA LIJEKA?200 MG??DOZIRANJE?500 MG, TRI TABLETE ISTOVREMENO
     Route: 048
     Dates: start: 20210921, end: 20211112

REACTIONS (21)
  - Myalgia [Fatal]
  - Arthralgia [Fatal]
  - Hallucination [Fatal]
  - Retching [Fatal]
  - Disorganised speech [Fatal]
  - Respiratory rate increased [Fatal]
  - Decreased appetite [Fatal]
  - Cough [Fatal]
  - Bone pain [Fatal]
  - Insomnia [Fatal]
  - Dysarthria [Fatal]
  - Confusional state [Fatal]
  - Hypopnoea [Fatal]
  - Speech disorder [Fatal]
  - Constipation [Fatal]
  - Fatigue [Fatal]
  - Dyspnoea [Fatal]
  - Poverty of speech [Fatal]
  - Incontinence [Fatal]
  - Taste disorder [Fatal]
  - Wheezing [Fatal]

NARRATIVE: CASE EVENT DATE: 20210921
